FAERS Safety Report 19475253 (Version 3)
Quarter: 2021Q4

REPORT INFORMATION
  Report Type: Spontaneous
  Country: CA (occurrence: CA)
  Receive Date: 20210630
  Receipt Date: 20211021
  Transmission Date: 20220304
  Serious: Yes (Hospitalization)
  Sender: FDA-Public Use
  Company Number: CA-CURIUM-2021000467

PATIENT
  Age: 52 Year
  Sex: Female
  Weight: 107 kg

DRUGS (33)
  1. GALLIUM CITRATE GA-67 [Suspect]
     Active Substance: GALLIUM CITRATE GA-67
     Dosage: 1 DAY
     Route: 042
     Dates: start: 20201202, end: 20201202
  2. ACETAMINOPHEN [Concomitant]
     Active Substance: ACETAMINOPHEN
     Route: 065
  3. ARIPIPRAZOLE [Concomitant]
     Active Substance: ARIPIPRAZOLE
     Route: 065
  4. ASPIRIN [Concomitant]
     Active Substance: ASPIRIN
     Route: 065
  5. CELECOXIB [Concomitant]
     Active Substance: CELECOXIB
     Route: 065
  6. CHOLESTYRAMINE [Concomitant]
     Active Substance: CHOLESTYRAMINE
     Route: 065
  7. CITALOPRAM [Concomitant]
     Active Substance: CITALOPRAM HYDROBROMIDE
     Route: 065
  8. FLUTICASONE [Concomitant]
     Active Substance: FLUTICASONE
     Route: 065
  9. INSULIN NOS [Concomitant]
     Active Substance: INSULIN NOS
     Route: 065
  10. KADIAN [Concomitant]
     Active Substance: MORPHINE SULFATE
     Route: 065
  11. LANTUS [Concomitant]
     Active Substance: INSULIN GLARGINE
     Route: 058
  12. LEVOTHYROXINE [Concomitant]
     Active Substance: LEVOTHYROXINE
     Route: 065
  13. METFORMIN [Concomitant]
     Active Substance: METFORMIN HYDROCHLORIDE
     Route: 065
  14. OMEPRAZOLE [Concomitant]
     Active Substance: OMEPRAZOLE
     Route: 065
  15. OZEMPIC [Concomitant]
     Active Substance: SEMAGLUTIDE
     Route: 058
  16. PREGABALIN [Concomitant]
     Active Substance: PREGABALIN
     Route: 065
  17. QUETIAPINE [Concomitant]
     Active Substance: QUETIAPINE
     Route: 065
  18. VENTOLIN [Concomitant]
     Active Substance: ALBUTEROL SULFATE
     Route: 055
  19. FERROUS SULFATE [Concomitant]
     Active Substance: FERROUS SULFATE
     Route: 065
  20. FRAGMIN [Concomitant]
     Active Substance: DALTEPARIN SODIUM
     Route: 065
  21. HEPARIN [Concomitant]
     Active Substance: HEPARIN SODIUM
     Route: 065
  22. HYDROXYZINE [Concomitant]
     Active Substance: HYDROXYZINE HYDROCHLORIDE
     Route: 065
  23. VITAMINS [Concomitant]
     Active Substance: VITAMINS
     Route: 065
  24. NICOTINE [Concomitant]
     Active Substance: NICOTINE
     Route: 065
  25. PANTOPRAZOLE [Concomitant]
     Active Substance: PANTOPRAZOLE
     Route: 065
  26. TECHNETIUM TC-99M MEDRONATE KIT [Concomitant]
     Active Substance: TECHNETIUM TC-99M MEDRONATE
     Dosage: 982 MBQ ONCE
     Route: 042
     Dates: start: 20201202, end: 20201202
  27. VITAMIN B12 [Concomitant]
     Active Substance: CYANOCOBALAMIN
     Route: 065
  28. ZINC [Concomitant]
     Active Substance: ZINC
     Route: 065
  29. CEFTRIAXONE [Concomitant]
     Active Substance: CEFTRIAXONE
     Route: 065
  30. CHOLECALCIFEROL [Concomitant]
     Active Substance: CHOLECALCIFEROL
     Route: 065
  31. CIPROFLOXACIN [Concomitant]
     Active Substance: CIPROFLOXACIN
     Route: 065
  32. DEXILANT [Concomitant]
     Active Substance: DEXLANSOPRAZOLE
     Route: 065
  33. DOXYCYCLINE [Concomitant]
     Active Substance: DOXYCYCLINE
     Route: 065

REACTIONS (4)
  - Erythema [Recovered/Resolved]
  - Urticaria [Recovered/Resolved]
  - Inflammation [Recovered/Resolved]
  - Rash pruritic [Recovered/Resolved]
